FAERS Safety Report 10799196 (Version 1)
Quarter: 2015Q1

REPORT INFORMATION
  Report Type: Spontaneous
  Country: US (occurrence: US)
  Receive Date: 20150216
  Receipt Date: 20150216
  Transmission Date: 20150721
  Serious: No
  Sender: FDA-Public Use
  Company Number: US-ALLERGAN-1400279US

PATIENT
  Age: 75 Year
  Sex: Female

DRUGS (5)
  1. RESTASIS [Suspect]
     Active Substance: CYCLOSPORINE
     Indication: DRY EYE
     Dosage: 2 GTT, BID
     Route: 047
  2. SYSTANE LIQUID [Concomitant]
     Indication: DRY EYE
  3. XARELTO [Concomitant]
     Active Substance: RIVAROXABAN
     Indication: ATRIAL FIBRILLATION
  4. BLINK EYES [Concomitant]
     Indication: DRY EYE
  5. SYSTANE GEL [Concomitant]
     Indication: DRY EYE

REACTIONS (5)
  - Foreign body sensation in eyes [Not Recovered/Not Resolved]
  - Drug ineffective [Unknown]
  - Eye irritation [Not Recovered/Not Resolved]
  - Asthenopia [Not Recovered/Not Resolved]
  - Incorrect product storage [Unknown]
